FAERS Safety Report 21409502 (Version 1)
Quarter: 2022Q4

REPORT INFORMATION
  Report Type: Other
  Country: NL (occurrence: GR)
  Receive Date: 20221004
  Receipt Date: 20221004
  Transmission Date: 20230113
  Serious: Yes (Other)
  Sender: FDA-Public Use
  Company Number: None

PATIENT
  Sex: Male

DRUGS (2)
  1. PITAVASTATIN CALCIUM [Suspect]
     Active Substance: PITAVASTATIN CALCIUM
     Indication: Type IIa hyperlipidaemia
     Dates: start: 20210416, end: 20210516
  2. EZETIMIBE [Suspect]
     Active Substance: EZETIMIBE
     Indication: Type IIa hyperlipidaemia
     Dosage: UNK
     Dates: start: 20211022, end: 20211222

REACTIONS (6)
  - Joint stiffness [Recovered/Resolved with Sequelae]
  - Joint stiffness [Recovered/Resolved]
  - Myalgia [Recovered/Resolved with Sequelae]
  - Myalgia [Recovered/Resolved]
  - Muscle spasms [Recovered/Resolved with Sequelae]
  - Muscle spasms [Recovered/Resolved]

NARRATIVE: CASE EVENT DATE: 20210516
